FAERS Safety Report 16892608 (Version 3)
Quarter: 2019Q4

REPORT INFORMATION
  Report Type: Spontaneous
  Country: US (occurrence: US)
  Receive Date: 20191007
  Receipt Date: 20191113
  Transmission Date: 20200122
  Serious: Yes (Other)
  Sender: FDA-Public Use
  Company Number: US-AKORN PHARMACEUTICALS-2019AKN02095

PATIENT
  Age: 24 Year
  Sex: Female

DRUGS (2)
  1. MYORISAN [Suspect]
     Active Substance: ISOTRETINOIN
     Dosage: 40 MG, 2X/DAY (AVERAGE DAILY DOSE: 80 MG)
     Dates: start: 20190322, end: 20190821
  2. COMBINATION ORAL CONTRACEPTIVE (UNSPECIFIED) [Concomitant]

REACTIONS (3)
  - Abortion induced [Recovered/Resolved]
  - Back injury [Not Recovered/Not Resolved]
  - Exposure during pregnancy [Recovered/Resolved]

NARRATIVE: CASE EVENT DATE: 20190810
